FAERS Safety Report 23906835 (Version 2)
Quarter: 2024Q2

REPORT INFORMATION
  Report Type: Other
  Country: US (occurrence: None)
  Receive Date: 20240528
  Receipt Date: 20240605
  Transmission Date: 20240716
  Serious: Yes (Hospitalization)
  Sender: FDA-Public Use
  Company Number: US-ROCHE-3565269

PATIENT
  Age: 45 Year
  Sex: Female
  Weight: 97.61 kg

DRUGS (6)
  1. OCREVUS [Suspect]
     Active Substance: OCRELIZUMAB
     Indication: Relapsing-remitting multiple sclerosis
     Dosage: DATE OF TREATMENT: 29/OCT/2023
     Route: 042
     Dates: start: 202304
  2. MODAFINIL [Concomitant]
     Active Substance: MODAFINIL
     Dosage: ORAL PILL 200 MG ONCE DAILY
     Dates: start: 2022
  3. BACLOFEN [Concomitant]
     Active Substance: BACLOFEN
     Indication: Muscle spasms
     Dosage: ORAL TABLET 20 MG THRICE A DAY
     Dates: start: 2017
  4. BACLOFEN [Concomitant]
     Active Substance: BACLOFEN
     Indication: Muscle spasms
  5. TECFIDERA [Concomitant]
     Active Substance: DIMETHYL FUMARATE
  6. VUMERITY [Concomitant]
     Active Substance: DIROXIMEL FUMARATE

REACTIONS (5)
  - Influenza [Unknown]
  - Pneumonia [Recovered/Resolved with Sequelae]
  - Hepatic enzyme increased [Recovered/Resolved]
  - Pulmonary function test [Recovered/Resolved]
  - Coma [Recovered/Resolved]

NARRATIVE: CASE EVENT DATE: 20231231
